FAERS Safety Report 4427588-9 (Version None)
Quarter: 2004Q3

REPORT INFORMATION
  Report Type: 
  Country: None (occurrence: None)
  Receive Date: 20040817
  Receipt Date: 20040624
  Transmission Date: 20050211
  Serious: Yes (Hospitalization, Other)
  Sender: FDA-Public Use
  Company Number: US-BRISTOL-MYERS SQUIBB COMPANY-12623716

PATIENT
  Age: 27 Year
  Sex: Male
  Weight: 53 kg

DRUGS (10)
  1. STAVUDINE XR [Suspect]
     Route: 048
     Dates: start: 20040426, end: 20040527
  2. KALETRA [Suspect]
     Dosage: 133.3MG/33.3MG, TEMPORARILY HELD ON 27-MAY-2004
     Route: 048
     Dates: start: 20040426, end: 20040608
  3. EMTRIVA [Suspect]
     Dosage: TEMPORARILY HELD ON 27-MAY-2004,
     Route: 048
     Dates: start: 20040426, end: 20040608
  4. VIREAD [Suspect]
     Dosage: TEMPORARILY HELD ON 27-MAY-2004,
     Route: 048
     Dates: start: 20040527, end: 20040608
  5. NSAID [Suspect]
     Indication: PAIN
     Dates: start: 20040527
  6. AZITHROMYCIN [Concomitant]
  7. ETHAMBUTOL HCL [Concomitant]
  8. MYCELEX TROCHES [Concomitant]
  9. ACETAMINOPHEN [Concomitant]
  10. MEPRON [Concomitant]

REACTIONS (7)
  - ANAEMIA [None]
  - BLOOD CREATININE INCREASED [None]
  - DRUG DEPENDENCE [None]
  - MEDICATION ERROR [None]
  - MYCOBACTERIUM AVIUM COMPLEX INFECTION [None]
  - PROGRESSIVE MULTIFOCAL LEUKOENCEPHALOPATHY [None]
  - RENAL FAILURE ACUTE [None]
